FAERS Safety Report 22587390 (Version 2)
Quarter: 2023Q2

REPORT INFORMATION
  Report Type: Spontaneous
  Country: GB (occurrence: GB)
  Receive Date: 20230612
  Receipt Date: 20230619
  Transmission Date: 20230721
  Serious: Yes (Death, Hospitalization, Other)
  Sender: FDA-Public Use
  Company Number: None

PATIENT
  Age: 65 Year

DRUGS (2)
  1. FUROSEMIDE [Suspect]
     Active Substance: FUROSEMIDE
     Dosage: NA
  2. OMEPRAZOLE [Suspect]
     Active Substance: OMEPRAZOLE
     Dosage: NA

REACTIONS (8)
  - Hyponatraemia [Fatal]
  - Malignant spinal cord compression [Fatal]
  - Abdominal distension [Fatal]
  - Intestinal obstruction [Fatal]
  - Vomiting [Fatal]
  - Bowel movement irregularity [Fatal]
  - Pulmonary embolism [Fatal]
  - Cardio-respiratory arrest [Fatal]
